FAERS Safety Report 6226360-7 (Version None)
Quarter: 2009Q2

REPORT INFORMATION
  Report Type: 
  Country: None (occurrence: None)
  Receive Date: 20090612
  Receipt Date: 20090606
  Transmission Date: 20091009
  Serious: Yes (Life-Threatening, Hospitalization)
  Sender: FDA-Public Use
  Company Number: US-JNJFOC-20090603215

PATIENT
  Sex: Female
  Weight: 68.04 kg

DRUGS (1)
  1. MOTRIN [Suspect]
     Indication: MIGRAINE

REACTIONS (3)
  - BODY TEMPERATURE DECREASED [None]
  - CARDIO-RESPIRATORY ARREST [None]
  - CONVULSION [None]
